FAERS Safety Report 11219782 (Version 1)
Quarter: 2015Q2

REPORT INFORMATION
  Report Type: Spontaneous
  Country: US (occurrence: None)
  Receive Date: 20150624
  Receipt Date: 20150624
  Transmission Date: 20150821
  Serious: Yes (Disabling)
  Sender: FDA-Public Use
  Company Number: None

PATIENT
  Age: 52 Day
  Sex: Male
  Weight: 147.42 kg

DRUGS (8)
  1. LANTUS [Concomitant]
     Active Substance: INSULIN GLARGINE
  2. METFORMIN [Concomitant]
     Active Substance: METFORMIN HYDROCHLORIDE
  3. LOW DOSE ASPRIN 81 MG [Concomitant]
  4. NITROCLYCERINE [Concomitant]
  5. FISH OIL FOR OMEGA 3 [Concomitant]
  6. GLIPIZIDE 10 MG [Suspect]
     Active Substance: GLIPIZIDE
     Indication: TYPE 2 DIABETES MELLITUS
     Dosage: 1  TWICE DAILY
     Dates: start: 20090615, end: 20141115
  7. PRILOCET [Concomitant]
  8. METPROPORAL [Concomitant]

REACTIONS (1)
  - Pancreatitis acute [None]
